FAERS Safety Report 23357141 (Version 1)
Quarter: 2023Q4

REPORT INFORMATION
  Report Type: Spontaneous
  Country: US (occurrence: None)
  Receive Date: 20231230
  Receipt Date: 20231230
  Transmission Date: 20240110
  Serious: No
  Sender: FDA-Public Use
  Company Number: None

PATIENT
  Age: 25 Year
  Sex: Female
  Weight: 105.75 kg

DRUGS (4)
  1. XOFLUZA [Suspect]
     Active Substance: BALOXAVIR MARBOXIL
     Indication: Influenza
     Dosage: OTHER QUANTITY : 1 TABLET(S);?OTHER FREQUENCY : ONE-TIME;?
     Route: 048
     Dates: start: 20231226, end: 20231226
  2. SPRINTEC [Concomitant]
     Active Substance: ETHINYL ESTRADIOL\NORGESTIMATE
  3. BENADRYL [Concomitant]
     Active Substance: DIPHENHYDRAMINE HYDROCHLORIDE
  4. ADVIL [Concomitant]
     Active Substance: IBUPROFEN

REACTIONS (1)
  - Drug hypersensitivity [None]
